FAERS Safety Report 11182641 (Version 4)
Quarter: 2016Q1

REPORT INFORMATION
  Report Type: Spontaneous
  Country: US (occurrence: US)
  Receive Date: 20150611
  Receipt Date: 20160129
  Transmission Date: 20160525
  Serious: Yes (Hospitalization)
  Sender: FDA-Public Use
  Company Number: US-ASTELLAS-2015US016940

PATIENT
  Age: 74 Year
  Sex: Male

DRUGS (1)
  1. XTANDI [Suspect]
     Active Substance: ENZALUTAMIDE
     Indication: PROSTATE CANCER
     Dosage: 160 MG (4X 40 MG), ONCE DAILY
     Route: 048

REACTIONS (9)
  - Renal failure [Unknown]
  - Dysphagia [Unknown]
  - Hospitalisation [Recovered/Resolved]
  - Product size issue [Unknown]
  - Chest pain [Unknown]
  - Abdominal discomfort [Unknown]
  - Asthenia [Unknown]
  - Blood potassium increased [Unknown]
  - Drug dose omission [Unknown]

NARRATIVE: CASE EVENT DATE: 20150910
